FAERS Safety Report 14732785 (Version 1)
Quarter: 2018Q2

REPORT INFORMATION
  Report Type: Spontaneous
  Country: US (occurrence: US)
  Receive Date: 20180409
  Receipt Date: 20180409
  Transmission Date: 20180711
  Serious: No
  Sender: FDA-Public Use
  Company Number: US-PFIZER INC-2018136561

PATIENT
  Age: 57 Year
  Sex: Female

DRUGS (2)
  1. NORTHERA [Suspect]
     Active Substance: DROXIDOPA
     Indication: ORTHOSTATIC HYPOTENSION
     Dosage: 100 MG, 3X/DAY
     Route: 048
     Dates: start: 20180218
  2. NEURONTIN [Suspect]
     Active Substance: GABAPENTIN
     Dosage: UNK

REACTIONS (4)
  - Balance disorder [Recovering/Resolving]
  - Feeling drunk [Recovering/Resolving]
  - Fall [Recovering/Resolving]
  - Hypotension [Recovering/Resolving]
